FAERS Safety Report 11494776 (Version 1)
Quarter: 2015Q3

REPORT INFORMATION
  Report Type: Spontaneous
  Country: CA (occurrence: CA)
  Receive Date: 20150911
  Receipt Date: 20150911
  Transmission Date: 20151125
  Serious: Yes (Other)
  Sender: FDA-Public Use
  Company Number: CA-PFIZER INC-2015301680

PATIENT
  Age: 30 Year
  Sex: Male

DRUGS (1)
  1. BENEFIX [Suspect]
     Active Substance: COAGULATION FACTOR IX RECOMBINANT HUMAN\ISOPROPYL ALCOHOL
     Indication: FACTOR IX DEFICIENCY
     Dosage: 3000 IU, UNK
     Route: 042
     Dates: start: 20150509

REACTIONS (3)
  - Ear haemorrhage [Recovered/Resolved]
  - Erythema [Recovered/Resolved]
  - Blister rupture [Recovered/Resolved]

NARRATIVE: CASE EVENT DATE: 20150905
